FAERS Safety Report 8223727-2 (Version None)
Quarter: 2012Q1

REPORT INFORMATION
  Report Type: 
  Country: None (occurrence: None)
  Receive Date: 20120321
  Receipt Date: 20120309
  Transmission Date: 20120608
  Serious: Yes (Other)
  Sender: FDA-Public Use
  Company Number: GB-JNJFOC-20120106980

PATIENT
  Sex: Female
  Weight: 52 kg

DRUGS (5)
  1. REMICADE [Suspect]
     Indication: CROHN'S DISEASE
     Route: 042
     Dates: start: 20120112, end: 20120112
  2. REMICADE [Suspect]
     Route: 042
  3. HYDROCORTISONE [Concomitant]
     Indication: PREMEDICATION
     Route: 042
     Dates: start: 20120112, end: 20120112
  4. CHLORPHENIRAMINE MALEATE [Concomitant]
     Indication: PREMEDICATION
     Route: 042
     Dates: start: 20120112, end: 20120112
  5. AZATHIOPRINE [Concomitant]
     Indication: CROHN'S DISEASE
     Route: 065
     Dates: start: 20111201

REACTIONS (8)
  - INFUSION RELATED REACTION [None]
  - TACHYCARDIA [None]
  - RASH [None]
  - OROPHARYNGEAL PAIN [None]
  - URTICARIA [None]
  - DRUG HYPERSENSITIVITY [None]
  - FACE OEDEMA [None]
  - DYSPNOEA [None]
